FAERS Safety Report 6801070-3 (Version None)
Quarter: 2010Q2

REPORT INFORMATION
  Report Type: 
  Country: None (occurrence: None)
  Receive Date: 20100629
  Receipt Date: 20100621
  Transmission Date: 20101027
  Serious: Yes (Other)
  Sender: FDA-Public Use
  Company Number: DE-JNJCH-2010013192

PATIENT
  Sex: Female
  Weight: 64 kg

DRUGS (5)
  1. REGAINE 2% [Suspect]
     Indication: ALOPECIA
     Dosage: TEXT:ONE MILLILITER, TWICE A DAY
     Route: 061
  2. CORTISONE [Concomitant]
     Indication: MULTIPLE SCLEROSIS
     Dosage: TEXT:500MG/ DAY
     Route: 042
     Dates: start: 20100422, end: 20100426
  3. AMOXICILLIN ^RATIOPHARM^ [Concomitant]
     Indication: TONSILLITIS
     Dosage: TEXT:1000MG, THREE TABLETS/ DAILY
     Route: 048
     Dates: start: 20100503, end: 20100504
  4. AMOXICILLIN ^RATIOPHARM^ [Concomitant]
     Dosage: TEXT:1000MG, TWO TABLETS/ DAILY
     Route: 048
     Dates: start: 20100505, end: 20100506
  5. AZITHROMYCIN [Concomitant]
     Dosage: TEXT:250MG, TWO TABLETS/ DAILY
     Route: 048
     Dates: start: 20100507, end: 20100509

REACTIONS (6)
  - ANGINA PECTORIS [None]
  - DIZZINESS [None]
  - DYSPHAGIA [None]
  - EAR DISORDER [None]
  - THROAT IRRITATION [None]
  - TREMOR [None]
